FAERS Safety Report 10246335 (Version 1)
Quarter: 2014Q2

REPORT INFORMATION
  Report Type: Spontaneous
  Country: US (occurrence: None)
  Receive Date: 20140617
  Receipt Date: 20140617
  Transmission Date: 20141212
  Serious: Yes (Hospitalization)
  Sender: FDA-Public Use
  Company Number: None

PATIENT
  Age: 40 Year
  Sex: Male
  Weight: 151.5 kg

DRUGS (1)
  1. BYETTA 0.5 MG SQ BID [Suspect]
     Indication: DIABETES MELLITUS
     Dosage: TWICE DAILY, GIVEN INTO/UNDER THE SKIN
     Dates: start: 20140201, end: 20140614

REACTIONS (1)
  - Pancreatitis [None]
